FAERS Safety Report 15575708 (Version 3)
Quarter: 2020Q3

REPORT INFORMATION
  Report Type: Spontaneous
  Country: US (occurrence: US)
  Receive Date: 20181101
  Receipt Date: 20200819
  Transmission Date: 20201102
  Serious: Yes (Death, Life-Threatening, Hospitalization)
  Sender: FDA-Public Use
  Company Number: US-JNJFOC-20181028565

PATIENT
  Age: 79 Year
  Sex: Female

DRUGS (2)
  1. XARELTO [Suspect]
     Active Substance: RIVAROXABAN
     Indication: PULMONARY EMBOLISM
     Route: 048
     Dates: start: 20150901, end: 20170529
  2. XARELTO [Suspect]
     Active Substance: RIVAROXABAN
     Dosage: FROM AN UNSPECIFIED DATE IN 2017
     Route: 048
     Dates: end: 20171030

REACTIONS (4)
  - Arterial haemorrhage [Fatal]
  - Shock haemorrhagic [Fatal]
  - Acute kidney injury [Unknown]
  - Haemoperitoneum [Unknown]

NARRATIVE: CASE EVENT DATE: 20170528
